FAERS Safety Report 8375575-0 (Version None)
Quarter: 2012Q2

REPORT INFORMATION
  Report Type: 
  Country: None (occurrence: None)
  Receive Date: 20120517
  Receipt Date: 20120517
  Transmission Date: 20120825
  Serious: Yes (Other)
  Sender: FDA-Public Use
  Company Number: None

PATIENT
  Age: 65 Year
  Sex: Female
  Weight: 106.5953 kg

DRUGS (1)
  1. FENTANYL [Suspect]
     Indication: PAIN
     Dosage: 75 MCG 1 EVERY 46 HOURS TRANSDERMAL
     Route: 062
     Dates: start: 20120503

REACTIONS (3)
  - PRODUCT ADHESION ISSUE [None]
  - DEVICE LEAKAGE [None]
  - APPLICATION SITE PAIN [None]
